FAERS Safety Report 4277176-2 (Version None)
Quarter: 2004Q1

REPORT INFORMATION
  Report Type: 
  Country: None (occurrence: None)
  Receive Date: 20040120
  Receipt Date: 20040108
  Transmission Date: 20041129
  Serious: Yes (Death)
  Sender: FDA-Public Use
  Company Number: APCDSS2003000140

PATIENT
  Age: 8 Year
  Sex: Female

DRUGS (6)
  1. FENTANYL [Suspect]
     Indication: CANCER PAIN
     Dosage: 2.5 MG, 1 IN 3 DAY, TRANSDERMAL
     Route: 062
     Dates: start: 20021102, end: 20030101
  2. FENTANYL [Suspect]
     Indication: CANCER PAIN
     Dosage: 2.5 MG, 1 IN 3 DAY, TRANSDERMAL
     Route: 062
     Dates: start: 20030101, end: 20030201
  3. SULFAMETHOXAZOLE/TRIMETHOPRIM (UNSPECIFIED) (BACTRIM) UNSPECIFIED [Concomitant]
  4. AMPHOTERICIN B (SYRUP) AMPHOTERICIN B [Concomitant]
  5. ETIZOLAM (ETIZOLAM) UNSPECIFIED [Concomitant]
  6. AMITRIPTYLINE HYDROCHLORIDE (AMITRIPTYLINE HYDROCHLORIDE) UNSPECIFIED [Concomitant]

REACTIONS (6)
  - DRUG LEVEL INCREASED [None]
  - LUNG NEOPLASM [None]
  - NAUSEA [None]
  - NEOPLASM GROWTH ACCELERATED [None]
  - PELVIC NEOPLASM [None]
  - VOMITING [None]
